FAERS Safety Report 26088891 (Version 3)
Quarter: 2025Q4

REPORT INFORMATION
  Report Type: Report from Study
  Country: US (occurrence: US)
  Receive Date: 20251125
  Receipt Date: 20251218
  Transmission Date: 20260117
  Serious: Yes (Other)
  Sender: ABBVIE
  Company Number: US-ABBVIE-6561481

PATIENT
  Sex: Female

DRUGS (1)
  1. RESTASIS [Suspect]
     Active Substance: CYCLOSPORINE
     Indication: Dry eye
     Dosage: 1 DROP IN BOTH EYES EYES ONCE A DAY, FORM STRENGTH: 0.5 MILLIGRAM/MILLILITERS
     Route: 047
     Dates: start: 202209

REACTIONS (2)
  - Surgery [Unknown]
  - Illness [Unknown]
